FAERS Safety Report 15033855 (Version 3)
Quarter: 2018Q3

REPORT INFORMATION
  Report Type: Report from Study
  Country: US (occurrence: US)
  Receive Date: 20180619
  Receipt Date: 20180821
  Transmission Date: 20181010
  Serious: Yes (Hospitalization)
  Sender: FDA-Public Use
  Company Number: US-ROCHE-2142326

PATIENT
  Sex: Female

DRUGS (1)
  1. ESBRIET [Suspect]
     Active Substance: PIRFENIDONE
     Indication: IDIOPATHIC PULMONARY FIBROSIS
     Route: 065

REACTIONS (7)
  - Scar [Unknown]
  - Localised infection [Unknown]
  - Dyspnoea [Unknown]
  - Productive cough [Unknown]
  - Gait disturbance [Unknown]
  - Thrombosis [Unknown]
  - Asthenia [Unknown]
